FAERS Safety Report 14307134 (Version 1)
Quarter: 2017Q4

REPORT INFORMATION
  Report Type: Spontaneous
  Country: US (occurrence: US)
  Receive Date: 20171220
  Receipt Date: 20171220
  Transmission Date: 20180321
  Serious: No
  Sender: FDA-Public Use
  Company Number: US-SCIEGEN PHARMACEUTICALS INC-2017SCISPO00747

PATIENT

DRUGS (1)
  1. LAMOTRIGINE TABLETS [Suspect]
     Active Substance: LAMOTRIGINE
     Indication: PRODUCT USED FOR UNKNOWN INDICATION
     Dosage: 100 MG, QD
     Route: 048
     Dates: start: 20171113

REACTIONS (6)
  - Headache [Unknown]
  - Off label use [Unknown]
  - Feeling abnormal [Unknown]
  - Nausea [Unknown]
  - Insomnia [Unknown]
  - Muscle twitching [Unknown]
